FAERS Safety Report 16836088 (Version 1)
Quarter: 2019Q3

REPORT INFORMATION
  Report Type: Spontaneous
  Country: US (occurrence: US)
  Receive Date: 20190921
  Receipt Date: 20190921
  Transmission Date: 20191005
  Serious: No
  Sender: FDA-Public Use
  Company Number: US-DRREDDYS-USA/USA/19/0114187

PATIENT
  Sex: Female

DRUGS (1)
  1. MINOCYCLINE HYDROCHLORIDE 100 MG [Suspect]
     Active Substance: MINOCYCLINE HYDROCHLORIDE
     Indication: PRODUCT USED FOR UNKNOWN INDICATION
     Route: 048

REACTIONS (4)
  - Product dose omission [Unknown]
  - Product colour issue [Unknown]
  - Poor quality product administered [Unknown]
  - Product contamination microbial [Unknown]
